FAERS Safety Report 7784807-9 (Version None)
Quarter: 2011Q3

REPORT INFORMATION
  Report Type: 
  Country: None (occurrence: None)
  Receive Date: 20110928
  Receipt Date: 20110921
  Transmission Date: 20111222
  Serious: Yes (Hospitalization)
  Sender: FDA-Public Use
  Company Number: US-B.I. PHARMACEUTICALS,INC./RIDGEFIELD-2011-BP-18401BP

PATIENT
  Sex: Female

DRUGS (5)
  1. ZANTAC [Concomitant]
     Indication: DYSPEPSIA
     Dosage: 300 MG
     Route: 048
  2. PRADAXA [Suspect]
     Indication: ATRIAL FIBRILLATION
     Dosage: 300 MG
     Route: 048
     Dates: start: 20110301
  3. VALIUM [Concomitant]
     Indication: ANXIETY
     Dosage: 10 MG
     Route: 048
  4. MULTAQ [Concomitant]
     Indication: HYPERTENSION
     Dosage: 800 MG
     Route: 048
  5. DIOVAN [Concomitant]
     Indication: HYPERTENSION
     Dosage: 160 MG
     Route: 048

REACTIONS (7)
  - DYSPEPSIA [None]
  - OESOPHAGEAL PAIN [None]
  - ABDOMINAL PAIN UPPER [None]
  - DUODENITIS [None]
  - DIARRHOEA [None]
  - GASTRITIS [None]
  - ABDOMINAL DISCOMFORT [None]
